FAERS Safety Report 12565898 (Version 2)
Quarter: 2016Q3

REPORT INFORMATION
  Report Type: Report from Study
  Country: ES (occurrence: ES)
  Receive Date: 20160718
  Receipt Date: 20160818
  Transmission Date: 20161109
  Serious: Yes (Hospitalization)
  Sender: FDA-Public Use
  Company Number: PHHY2016ES097381

PATIENT
  Age: 50 Year
  Sex: Female

DRUGS (1)
  1. SANDOSTATIN LAR DEPOT [Suspect]
     Active Substance: OCTREOTIDE ACETATE
     Indication: NEUROENDOCRINE TUMOUR
     Dosage: 30 MG, UNK
     Route: 030
     Dates: start: 20160307

REACTIONS (3)
  - Thyroid mass [Recovered/Resolved]
  - Second primary malignancy [Recovered/Resolved]
  - Hepatic cancer [Recovered/Resolved]

NARRATIVE: CASE EVENT DATE: 20160617
